FAERS Safety Report 24013941 (Version 1)
Quarter: 2024Q2

REPORT INFORMATION
  Report Type: Spontaneous
  Country: DE (occurrence: DE)
  Receive Date: 20240626
  Receipt Date: 20240626
  Transmission Date: 20240716
  Serious: Yes (Other)
  Sender: FDA-Public Use
  Company Number: None

PATIENT
  Age: 46 Year
  Sex: Female
  Weight: 72 kg

DRUGS (1)
  1. PANTOPRAZOLE [Suspect]
     Active Substance: PANTOPRAZOLE
     Indication: Gastrooesophageal reflux disease
     Dosage: 1X 40MG ; IN TOTAL
     Route: 048
     Dates: start: 20240610, end: 20240610

REACTIONS (17)
  - Dizziness [Recovering/Resolving]
  - Heart rate increased [Unknown]
  - Anaphylactic reaction [Recovering/Resolving]
  - Generalised oedema [Recovering/Resolving]
  - Piloerection [Unknown]
  - Lip swelling [Unknown]
  - Peripheral swelling [Unknown]
  - Panic attack [Unknown]
  - Erythema [Recovering/Resolving]
  - Cardiovascular disorder [Unknown]
  - Ear swelling [Unknown]
  - Pruritus [Recovering/Resolving]
  - Urticaria [Unknown]
  - Peripheral swelling [Unknown]
  - General physical health deterioration [Unknown]
  - Chills [Unknown]
  - Tremor [Unknown]

NARRATIVE: CASE EVENT DATE: 20240610
